FAERS Safety Report 7211338-7 (Version None)
Quarter: 2011Q1

REPORT INFORMATION
  Report Type: 
  Country: None (occurrence: None)
  Receive Date: 20110105
  Receipt Date: 20101229
  Transmission Date: 20110831
  Serious: Yes (Hospitalization)
  Sender: FDA-Public Use
  Company Number: HU-ABBOTT-10P-076-0685062-00

PATIENT
  Sex: Male
  Weight: 80 kg

DRUGS (7)
  1. ATORIS [Suspect]
     Indication: HYPERLIPIDAEMIA
     Route: 048
     Dates: start: 20060501, end: 20101105
  2. AMARYL [Concomitant]
     Indication: TYPE 2 DIABETES MELLITUS
     Route: 048
     Dates: start: 20100323, end: 20101105
  3. RABYPREX [Concomitant]
     Indication: GASTROOESOPHAGEAL REFLUX DISEASE
     Route: 048
     Dates: start: 20090910, end: 20101105
  4. LIPIDIL [Suspect]
     Indication: HYPERLIPIDAEMIA
     Route: 048
     Dates: start: 20100329, end: 20101028
  5. EXFORGE [Concomitant]
     Indication: HYPERTENSION
     Dosage: 10/160MG ONCE A DAY
     Route: 048
     Dates: start: 20090910, end: 20101105
  6. NEBIVOLOL HYDROCHLORIDE [Concomitant]
     Indication: HYPERTENSION
     Route: 048
     Dates: start: 20090119, end: 20101105
  7. MEFORAL [Concomitant]
     Indication: DIABETES MELLITUS
     Route: 048
     Dates: start: 20100119, end: 20101105

REACTIONS (3)
  - PANCREATIC CARCINOMA [None]
  - HEPATOTOXICITY [None]
  - LIVER DISORDER [None]
